FAERS Safety Report 9891622 (Version 1)
Quarter: 2014Q1

REPORT INFORMATION
  Report Type: Spontaneous
  Country: US (occurrence: None)
  Receive Date: 20140210
  Receipt Date: 20140210
  Transmission Date: 20141002
  Serious: Yes (Death)
  Sender: FDA-Public Use
  Company Number: 2014020002

PATIENT
  Age: 53 Year
  Sex: Female

DRUGS (8)
  1. FENTANYL (FENTANYL) [Suspect]
  2. ZOLPIDEM (ZOLPIDEM) [Suspect]
  3. QUETIAPINE (QUETIAPINE) [Suspect]
  4. HYDROCODONE (HYDROCODONE) [Suspect]
  5. DIAZEPAM (DIAZEPAM) [Suspect]
  6. TRAZODONE (TRAZODONE) [Suspect]
  7. COCAINE (COCAINE) [Suspect]
  8. ACETAMINOPHEN (ACETAMINOPHEN) [Suspect]

REACTIONS (1)
  - Completed suicide [None]
